FAERS Safety Report 19116315 (Version 1)
Quarter: 2021Q2

REPORT INFORMATION
  Report Type: Spontaneous
  Country: US (occurrence: US)
  Receive Date: 20210410
  Receipt Date: 20210410
  Transmission Date: 20210717
  Serious: No
  Sender: FDA-Public Use
  Company Number: US-ORGANON-O2103USA003259

PATIENT
  Sex: Male

DRUGS (1)
  1. ASMANEX HFA [Suspect]
     Active Substance: MOMETASONE FUROATE
     Dosage: 100 MICROGRAM, 120 DOSE
     Route: 048

REACTIONS (1)
  - Product confusion [Unknown]

NARRATIVE: CASE EVENT DATE: 20210329
